FAERS Safety Report 25267601 (Version 1)
Quarter: 2025Q2

REPORT INFORMATION
  Report Type: Spontaneous
  Country: CO (occurrence: CO)
  Receive Date: 20250505
  Receipt Date: 20250505
  Transmission Date: 20250717
  Serious: Yes (Other)
  Sender: CHEPLAPHARM
  Company Number: CO-CHEPLA-2025005586

PATIENT
  Age: 29 Year
  Sex: Female

DRUGS (6)
  1. HYDROXYUREA [Suspect]
     Active Substance: HYDROXYUREA
     Dosage: MAH REF INVIMA 2022M-013672-R3?DAILY DOSE: 1500 MILLIGRAM
     Route: 048
     Dates: end: 20250318
  2. FOLIC ACID [Concomitant]
     Active Substance: FOLIC ACID
     Route: 048
  3. DEFERASIROX [Concomitant]
     Active Substance: DEFERASIROX
     Route: 048
     Dates: start: 20250218
  4. ASPIRIN [Concomitant]
     Active Substance: ASPIRIN
  5. ACETAMINOPHEN [Concomitant]
     Active Substance: ACETAMINOPHEN
  6. OXYCODONE [Concomitant]
     Active Substance: OXYCODONE
     Dates: start: 202206

REACTIONS (3)
  - Mobility decreased [Not Recovered/Not Resolved]
  - Pain [Not Recovered/Not Resolved]
  - Product dispensing issue [Not Recovered/Not Resolved]

NARRATIVE: CASE EVENT DATE: 20250318
